FAERS Safety Report 6649711-8 (Version None)
Quarter: 2010Q1

REPORT INFORMATION
  Report Type: 
  Country: None (occurrence: None)
  Receive Date: 20100324
  Receipt Date: 20100324
  Transmission Date: 20100710
  Serious: Yes (Hospitalization, Other)
  Sender: FDA-Public Use
  Company Number: None

PATIENT
  Age: 27 Year
  Sex: Female
  Weight: 86.1834 kg

DRUGS (1)
  1. MIRENA [Suspect]
     Indication: CONTRACEPTION
     Dates: start: 20050801, end: 20100101

REACTIONS (6)
  - ANXIETY [None]
  - CHEST DISCOMFORT [None]
  - CRYING [None]
  - FEAR [None]
  - PANIC ATTACK [None]
  - VIOLENCE-RELATED SYMPTOM [None]
